FAERS Safety Report 11783951 (Version 1)
Quarter: 2015Q4

REPORT INFORMATION
  Report Type: Spontaneous
  Country: US (occurrence: US)
  Receive Date: 20151128
  Receipt Date: 20151128
  Transmission Date: 20160305
  Serious: Yes (Hospitalization)
  Sender: FDA-Public Use
  Company Number: US-SUN PHARMACEUTICAL INDUSTRIES LTD-2015US-106389

PATIENT
  Sex: Male
  Weight: 100.23 kg

DRUGS (2)
  1. LYRICA [Concomitant]
     Active Substance: PREGABALIN
     Indication: PRODUCT USED FOR UNKNOWN INDICATION
     Dosage: UNK
     Route: 065
  2. TRAMADOL. [Suspect]
     Active Substance: TRAMADOL
     Indication: PRODUCT USED FOR UNKNOWN INDICATION
     Dosage: UNK
     Route: 065
     Dates: start: 2005

REACTIONS (6)
  - Nervousness [Unknown]
  - Weight increased [None]
  - Musculoskeletal stiffness [Unknown]
  - Drug withdrawal syndrome [Unknown]
  - Gluten sensitivity [Unknown]
  - Dyspepsia [Unknown]

NARRATIVE: CASE EVENT DATE: 2005
